FAERS Safety Report 7605923-8 (Version None)
Quarter: 2011Q3

REPORT INFORMATION
  Report Type: 
  Country: None (occurrence: None)
  Receive Date: 20110713
  Receipt Date: 20110629
  Transmission Date: 20111222
  Serious: Yes (Other)
  Sender: FDA-Public Use
  Company Number: PHHY2011BR27469

PATIENT
  Sex: Female

DRUGS (2)
  1. DIOVAN HCT [Suspect]
     Dosage: 1 DF, UNK
  2. VYTORIN [Suspect]
     Dosage: 1 DF, UNK

REACTIONS (3)
  - DENGUE FEVER [None]
  - NAUSEA [None]
  - FEELING ABNORMAL [None]
